FAERS Safety Report 6783607-6 (Version None)
Quarter: 2010Q2

REPORT INFORMATION
  Report Type: 
  Country: None (occurrence: None)
  Receive Date: 20100622
  Receipt Date: 20100612
  Transmission Date: 20101027
  Serious: Yes (Hospitalization)
  Sender: FDA-Public Use
  Company Number: CZ-TEVA-237919ISR

PATIENT
  Sex: Female

DRUGS (4)
  1. COPAXONE [Suspect]
     Indication: MULTIPLE SCLEROSIS
     Route: 058
     Dates: start: 20070620, end: 20080414
  2. AZATHIOPRINE [Concomitant]
     Indication: MULTIPLE SCLEROSIS
     Dates: start: 20050101, end: 20070701
  3. PREDNISONE [Concomitant]
     Dates: start: 20070601, end: 20080401
  4. FAMOTIDINE [Concomitant]
     Dates: start: 20070601, end: 20080401

REACTIONS (3)
  - ERYTHEMA NODOSUM [None]
  - PANCYTOPENIA [None]
  - SYSTEMIC LUPUS ERYTHEMATOSUS [None]
